FAERS Safety Report 6872819-9 (Version None)
Quarter: 2010Q3

REPORT INFORMATION
  Report Type: 
  Country: None (occurrence: None)
  Receive Date: 20100723
  Receipt Date: 20090311
  Transmission Date: 20110219
  Serious: No
  Sender: FDA-Public Use
  Company Number: US-PFIZER INC-2008089459

PATIENT
  Sex: Female
  Weight: 46.266 kg

DRUGS (4)
  1. CHANTIX [Suspect]
     Indication: SMOKING CESSATION THERAPY
     Dosage: 1 MG, 2X/DAY
     Route: 048
     Dates: start: 20081003, end: 20081012
  2. PLAQUENIL [Concomitant]
     Dosage: 200 MG, 1X/DAY
  3. ALESSE [Concomitant]
     Indication: CONTRACEPTION
     Dosage: UNK
  4. VITAMINS [Concomitant]
     Dosage: UNK

REACTIONS (6)
  - AFFECTIVE DISORDER [None]
  - ANGER [None]
  - ANXIETY [None]
  - NAUSEA [None]
  - PANIC ATTACK [None]
  - TOBACCO USER [None]
